FAERS Safety Report 18588364 (Version 1)
Quarter: 2020Q4

REPORT INFORMATION
  Report Type: Spontaneous
  Country: US (occurrence: US)
  Receive Date: 20201207
  Receipt Date: 20201207
  Transmission Date: 20210114
  Serious: No
  Sender: FDA-Public Use
  Company Number: US-US-PROVELL PHARMACEUTICALS LLC-9201483

PATIENT
  Age: 62 Year
  Sex: Female
  Weight: 127 kg

DRUGS (2)
  1. EUTHYROX [Suspect]
     Active Substance: LEVOTHYROXINE SODIUM
     Indication: HYPOTHYROIDISM
     Dates: start: 20201012
  2. IBUPROFEN. [Suspect]
     Active Substance: IBUPROFEN
     Indication: PRODUCT USED FOR UNKNOWN INDICATION
     Dates: end: 2020

REACTIONS (7)
  - Muscle spasms [Recovered/Resolved]
  - Dyspnoea [Recovering/Resolving]
  - Dizziness [Recovering/Resolving]
  - Swelling [Recovering/Resolving]
  - Fatigue [Recovering/Resolving]
  - Weight increased [Recovering/Resolving]
  - Abnormal dreams [Recovered/Resolved]

NARRATIVE: CASE EVENT DATE: 202011
